FAERS Safety Report 17675251 (Version 1)
Quarter: 2020Q2

REPORT INFORMATION
  Report Type: Spontaneous
  Country: US (occurrence: US)
  Receive Date: 20200415
  Receipt Date: 20200415
  Transmission Date: 20200714
  Serious: Yes (Hospitalization)
  Sender: FDA-Public Use
  Company Number: None

PATIENT
  Age: 75 Year
  Sex: Female

DRUGS (1)
  1. BOTOX [Suspect]
     Active Substance: ONABOTULINUMTOXINA
     Indication: TORTICOLLIS
     Dosage: ?          OTHER FREQUENCY:Q90D;OTHER ROUTE:IM - PRESCRIBER OFFICE?
     Route: 030
     Dates: start: 20190215

REACTIONS (3)
  - Rehabilitation therapy [None]
  - Mobility decreased [None]
  - Road traffic accident [None]

NARRATIVE: CASE EVENT DATE: 20200118
